FAERS Safety Report 6186069-5 (Version None)
Quarter: 2009Q2

REPORT INFORMATION
  Report Type: 
  Country: None (occurrence: None)
  Receive Date: 20090507
  Receipt Date: 20090423
  Transmission Date: 20091009
  Serious: Yes (Hospitalization)
  Sender: FDA-Public Use
  Company Number: 2008003332

PATIENT
  Age: 70 Year
  Sex: Female
  Weight: 52.3905 kg

DRUGS (9)
  1. ERLOTINIB (ERLOTINIB) (TABLET) (ERLOTINIB) [Suspect]
     Indication: NON-SMALL CELL LUNG CANCER
     Dosage: (QD),ORAL; (100 MG,QD),ORAL
     Route: 048
     Dates: start: 20080409, end: 20080513
  2. ERLOTINIB (ERLOTINIB) (TABLET) (ERLOTINIB) [Suspect]
     Indication: NON-SMALL CELL LUNG CANCER
     Dosage: (QD),ORAL; (100 MG,QD),ORAL
     Route: 048
     Dates: start: 20080514, end: 20080611
  3. SORAFENIB/ PLACEBO [Suspect]
     Indication: NON-SMALL CELL LUNG CANCER
     Dosage: (800 MG),ORAL; (200 MG,BID),ORAL
     Route: 048
     Dates: start: 20080409, end: 20080513
  4. SORAFENIB/ PLACEBO [Suspect]
     Indication: NON-SMALL CELL LUNG CANCER
     Dosage: (800 MG),ORAL; (200 MG,BID),ORAL
     Route: 048
     Dates: start: 20080514, end: 20080611
  5. SIMVASTATIN [Concomitant]
  6. PROTONIX [Concomitant]
  7. METOPROLOL TARTRATE [Concomitant]
  8. ATROVENT [Concomitant]
  9. ADVAIR HFA [Concomitant]

REACTIONS (9)
  - ASTHENIA [None]
  - CHEST PAIN [None]
  - DYSPNOEA [None]
  - FATIGUE [None]
  - HYPERHIDROSIS [None]
  - INTERSTITIAL LUNG DISEASE [None]
  - LOSS OF CONSCIOUSNESS [None]
  - OEDEMA [None]
  - SYNCOPE [None]
